FAERS Safety Report 18578560 (Version 2)
Quarter: 2022Q2

REPORT INFORMATION
  Report Type: Report from Study
  Country: US (occurrence: US)
  Receive Date: 20201204
  Receipt Date: 20220513
  Transmission Date: 20220721
  Serious: Yes (Hospitalization, Other)
  Sender: FDA-Public Use
  Company Number: US-TEVA-2020-US-1855712

PATIENT
  Age: 73 Year
  Sex: Male
  Weight: 104 kg

DRUGS (3)
  1. CLOZAPINE [Suspect]
     Active Substance: CLOZAPINE
     Indication: Parkinson^s disease
     Dosage: EVERY NIGHT
     Route: 065
     Dates: start: 20190530
  2. CLOZAPINE [Suspect]
     Active Substance: CLOZAPINE
     Indication: Dementia
  3. CLOZAPINE [Suspect]
     Active Substance: CLOZAPINE
     Indication: Abnormal behaviour

REACTIONS (3)
  - Hospitalisation [Unknown]
  - Neutrophil count decreased [Unknown]
  - Product use in unapproved indication [Unknown]

NARRATIVE: CASE EVENT DATE: 20201130
